FAERS Safety Report 6736342-4 (Version None)
Quarter: 2010Q2

REPORT INFORMATION
  Report Type: 
  Country: None (occurrence: None)
  Receive Date: 20100520
  Receipt Date: 20100520
  Transmission Date: 20101027
  Serious: Yes (Other)
  Sender: FDA-Public Use
  Company Number: None

PATIENT
  Sex: Male
  Weight: 72.8 kg

DRUGS (12)
  1. PIOGLITAZONE HYDROCHLORIDE, ACTOS R  30 MG (2 PILLS) ONCE A DAY FOR 2 [Suspect]
     Indication: ASTHMA
     Dosage: 30 MG (2 PILLS) ONCE A DAY FOR 2 WKS ORAL
     Route: 048
     Dates: start: 20100210, end: 20100511
  2. PLACEBO NA PDS, PH, CC, NIH [Suspect]
     Dosage: 45 MG (3 PILLS) ONCE A DAY ORAL
     Route: 048
  3. ADVAIR DISKUS 100/50 [Concomitant]
  4. QVAR 40 [Concomitant]
  5. PREDNISONE TAB [Concomitant]
  6. SINGULAIR [Concomitant]
  7. ALBUTEROL SULATE [Concomitant]
  8. FLONASE [Concomitant]
  9. FOSAMAX [Concomitant]
  10. PRILOSEC [Concomitant]
  11. ZOCOR [Concomitant]
  12. VITAMIN D AND CALIUM SUPPLEMENT [Concomitant]

REACTIONS (2)
  - OEDEMA PERIPHERAL [None]
  - WEIGHT INCREASED [None]
